FAERS Safety Report 7947260-8 (Version None)
Quarter: 2011Q4

REPORT INFORMATION
  Report Type: 
  Country: None (occurrence: None)
  Receive Date: 20111129
  Receipt Date: 20111117
  Transmission Date: 20120403
  Serious: Yes (Other)
  Sender: FDA-Public Use
  Company Number: US-ASTRAZENECA-2011SE69739

PATIENT
  Sex: Female

DRUGS (10)
  1. VICODIN [Concomitant]
  2. LAMICTAL [Concomitant]
  3. EMSAM [Concomitant]
  4. KLONOPIN [Concomitant]
  5. SEROQUEL [Suspect]
     Dosage: 100-200 MG AT NIGHT
     Route: 048
  6. AMBIEN [Concomitant]
  7. SAPHRIS [Suspect]
     Indication: BIPOLAR DISORDER
     Route: 065
     Dates: start: 20110822
  8. ACETAMINOPHEN [Concomitant]
  9. TOPAMAX [Concomitant]
  10. INVEGA [Concomitant]

REACTIONS (1)
  - HYPOMANIA [None]
